FAERS Safety Report 6131943-9 (Version None)
Quarter: 2009Q1

REPORT INFORMATION
  Report Type: 
  Country: None (occurrence: None)
  Receive Date: 20090325
  Receipt Date: 20090317
  Transmission Date: 20090719
  Serious: Yes (Other)
  Sender: FDA-Public Use
  Company Number: US-AVENTIS-200910552US

PATIENT
  Sex: Female

DRUGS (3)
  1. LANTUS [Suspect]
     Route: 058
     Dates: start: 20030101
  2. LANTUS [Suspect]
     Dosage: DOSE: 40 U IN AM AND 50 U IN PM
     Route: 058
  3. LANTUS [Suspect]
     Dosage: DOSE: 42 U IN AM AND 50 U IN PM
     Route: 058

REACTIONS (3)
  - BLOOD GLUCOSE INCREASED [None]
  - LUNG NEOPLASM MALIGNANT [None]
  - VISION BLURRED [None]
